FAERS Safety Report 25735618 (Version 2)
Quarter: 2025Q4

REPORT INFORMATION
  Report Type: Spontaneous
  Country: US (occurrence: US)
  Receive Date: 20250828
  Receipt Date: 20251015
  Transmission Date: 20260118
  Serious: Yes (Hospitalization)
  Sender: BIOGEN
  Company Number: US-BIOGEN-2025BI01321182

PATIENT
  Age: 71 Year
  Sex: Female
  Weight: 64.5 kg

DRUGS (15)
  1. QALSODY [Suspect]
     Active Substance: TOFERSEN
     Indication: Amyotrophic lateral sclerosis
     Dosage: LOADING
     Route: 050
     Dates: start: 20250806
  2. TYLENOL WITH CODEINE [Concomitant]
     Active Substance: ACETAMINOPHEN\CODEINE PHOSPHATE
     Indication: Product used for unknown indication
     Dosage: 300-30 MG
     Route: 050
  3. CALCIUM CARBONATE-MAG HYDROXID [Concomitant]
     Indication: Product used for unknown indication
     Dosage: 400-135 MG/5ML
     Route: 050
  4. CELEBREX [Concomitant]
     Active Substance: CELECOXIB
     Indication: Product used for unknown indication
     Route: 050
  5. CYMBALTA [Concomitant]
     Active Substance: DULOXETINE HYDROCHLORIDE
     Indication: Product used for unknown indication
     Dosage: DISPENSE 90 CAPSULE ?REFILL 3?DO NOT CRUSH OT CHEW
     Route: 050
  6. PEPCID [Concomitant]
     Active Substance: FAMOTIDINE
     Indication: Product used for unknown indication
     Dosage: IF NEEDED AT BEDTIME
     Route: 050
  7. XALATAN [Concomitant]
     Active Substance: LATANOPROST
     Indication: Product used for unknown indication
     Dosage: 0.005 % ADMINISTER 1 DROP INTO BOTH EYES AT BEDTIME
     Route: 050
  8. SYNTHROID, LEVOXYL [Concomitant]
     Indication: Product used for unknown indication
     Dosage: DAILY IN THE MORNING
     Route: 050
  9. LINZESS [Concomitant]
     Active Substance: LINACLOTIDE
     Indication: Product used for unknown indication
     Dosage: DAILY BEFORE BREAKFAST
     Route: 050
  10. VITAMINS [Concomitant]
     Active Substance: VITAMINS
     Indication: Product used for unknown indication
     Route: 050
  11. PROTONIX [Concomitant]
     Active Substance: PANTOPRAZOLE SODIUM
     Indication: Product used for unknown indication
     Dosage: DAILY BEFORE BREAKFAST
     Route: 050
  12. RILUTEK [Concomitant]
     Active Substance: RILUZOLE
     Indication: Product used for unknown indication
     Dosage: DISPENSE 180 TABLET REFILL 3?TWICE DAILY BEFORE BREAKFAST AND BEFORE EVENING MEAL
     Route: 050
  13. ZANAFLEX [Concomitant]
     Active Substance: TIZANIDINE HYDROCHLORIDE
     Indication: Product used for unknown indication
     Dosage: IF NEEDED AT BEDTIME
     Route: 050
  14. ULTRAM [Concomitant]
     Active Substance: TRAMADOL HYDROCHLORIDE
     Indication: Pain
     Dosage: DISPENSE 30 REFILL 5?EVERY 8 HOURS IF NEEDED FOR SEVERE PAIN
     Route: 050
  15. DESYREL [Concomitant]
     Active Substance: TRAZODONE HYDROCHLORIDE
     Indication: Product used for unknown indication
     Dosage: AT BEDTIME
     Route: 050

REACTIONS (3)
  - Radiculopathy [Recovered/Resolved]
  - Hypoacusis [Recovered/Resolved]
  - Brain fog [Recovered/Resolved]

NARRATIVE: CASE EVENT DATE: 20250806
